FAERS Safety Report 7421915-6 (Version None)
Quarter: 2011Q2

REPORT INFORMATION
  Report Type: 
  Country: None (occurrence: None)
  Receive Date: 20110418
  Receipt Date: 20110408
  Transmission Date: 20111010
  Serious: Yes (Hospitalization)
  Sender: FDA-Public Use
  Company Number: US-ASTRAZENECA-2011SE12650

PATIENT
  Age: 75 Year
  Sex: Female
  Weight: 79.4 kg

DRUGS (5)
  1. ALPRAZOLAM [Concomitant]
     Route: 048
  2. ASPIRIN [Concomitant]
  3. CRESTOR [Suspect]
     Route: 048
  4. FISH OIL [Concomitant]
  5. CALCIUM+D [Concomitant]
     Route: 048

REACTIONS (37)
  - AORTIC STENOSIS [None]
  - GASTROOESOPHAGEAL REFLUX DISEASE [None]
  - ARTHRITIS [None]
  - REPRODUCTIVE TRACT DISORDER [None]
  - UTERINE LEIOMYOMA [None]
  - PERIPHERAL VASCULAR DISORDER [None]
  - NECK PAIN [None]
  - ASTHENIA [None]
  - CARDIAC FAILURE CONGESTIVE [None]
  - EXOSTOSIS [None]
  - CARPAL TUNNEL SYNDROME [None]
  - MUSCULOSKELETAL PAIN [None]
  - SINUSITIS [None]
  - STENT PLACEMENT [None]
  - VISUAL IMPAIRMENT [None]
  - OSTEOARTHRITIS [None]
  - MUSCLE SPASMS [None]
  - DIZZINESS [None]
  - CAROTID ARTERY STENOSIS [None]
  - MITRAL VALVE INCOMPETENCE [None]
  - DYSPNOEA [None]
  - HYPERTENSION [None]
  - ANAEMIA [None]
  - STRESS [None]
  - ROTATOR CUFF SYNDROME [None]
  - CARDIAC OPERATION [None]
  - INSOMNIA [None]
  - NAUSEA [None]
  - DIABETES MELLITUS [None]
  - NASOPHARYNGITIS [None]
  - GLAUCOMA [None]
  - HYPOAESTHESIA [None]
  - INTERVERTEBRAL DISC DEGENERATION [None]
  - DRUG EFFECT DECREASED [None]
  - URINARY TRACT INFECTION [None]
  - NASAL SEPTUM DEVIATION [None]
  - GALLBLADDER DISORDER [None]
